FAERS Safety Report 4992016-1 (Version None)
Quarter: 2006Q2

REPORT INFORMATION
  Report Type: 
  Country: None (occurrence: None)
  Receive Date: 20060504
  Receipt Date: 19951019
  Transmission Date: 20061013
  Serious: Yes (Hospitalization)
  Sender: FDA-Public Use
  Company Number: ES-JNJFOC-20060404952

PATIENT
  Age: 19 Year
  Sex: Male

DRUGS (2)
  1. CANADIOL [Suspect]
     Indication: FUNGAL INFECTION
     Route: 048
     Dates: start: 19950515, end: 19950601
  2. URINORM [Concomitant]
     Indication: DRUG USE FOR UNKNOWN INDICATION

REACTIONS (2)
  - RENAL FAILURE ACUTE [None]
  - URTICARIA [None]
